FAERS Safety Report 7435394-6 (Version None)
Quarter: 2011Q2

REPORT INFORMATION
  Report Type: 
  Country: None (occurrence: None)
  Receive Date: 20110425
  Receipt Date: 20110329
  Transmission Date: 20111010
  Serious: Yes (Other)
  Sender: FDA-Public Use
  Company Number: US-BAYER-200924400NA

PATIENT
  Age: 55 Year
  Sex: Male

DRUGS (3)
  1. TRASYLOL [Suspect]
     Indication: MITRAL VALVE REPAIR
  2. TRASYLOL [Suspect]
     Indication: CORONARY ARTERY BYPASS
     Dosage: UNK
     Route: 042
     Dates: start: 20040929
  3. TRASYLOL [Suspect]
     Indication: CORONARY ENDARTERECTOMY

REACTIONS (9)
  - RENAL FAILURE CHRONIC [None]
  - UNEVALUABLE EVENT [None]
  - PAIN [None]
  - INJURY [None]
  - DEPRESSION [None]
  - RENAL FAILURE [None]
  - ANXIETY [None]
  - FEAR [None]
  - ANHEDONIA [None]
